FAERS Safety Report 25094758 (Version 1)
Quarter: 2025Q1

REPORT INFORMATION
  Report Type: Spontaneous
  Country: US (occurrence: None)
  Receive Date: 20250318
  Receipt Date: 20250318
  Transmission Date: 20250409
  Serious: Yes (Disabling)
  Sender: FDA-CTU
  Company Number: None

PATIENT
  Age: 76 Year
  Sex: Female
  Weight: 72.57 kg

DRUGS (8)
  1. REPATHA [Suspect]
     Active Substance: EVOLOCUMAB
     Indication: Low density lipoprotein increased
     Dosage: INJECT UNDER SKIN  EVERY 14 DAYS    INJECTION
     Route: 058
     Dates: start: 20240610, end: 20241214
  2. LOSARTAN [Concomitant]
     Active Substance: LOSARTAN
  3. ADVAIR HFA [Concomitant]
     Active Substance: FLUTICASONE PROPIONATE\SALMETEROL XINAFOATE
  4. B-12-500MG [Concomitant]
  5. HERBALS [Concomitant]
     Active Substance: HERBALS
  6. CALCIUM [Concomitant]
     Active Substance: CALCIUM
  7. LOSARTAN [Concomitant]
     Active Substance: LOSARTAN
  8. ADVAIR HFA [Concomitant]
     Active Substance: FLUTICASONE PROPIONATE\SALMETEROL XINAFOATE

REACTIONS (8)
  - Arthralgia [None]
  - Arthralgia [None]
  - Abnormal faeces [None]
  - Weight decreased [None]
  - Nonspecific reaction [None]
  - Arthritis [None]
  - Tendonitis [None]
  - Blood pressure increased [None]

NARRATIVE: CASE EVENT DATE: 20241210
